FAERS Safety Report 8382957 (Version 3)
Quarter: 2015Q2

REPORT INFORMATION
  Report Type: Report from Study
  Country: US (occurrence: US)
  Receive Date: 20120201
  Receipt Date: 20150622
  Transmission Date: 20150821
  Serious: Yes (Death)
  Sender: FDA-Public Use
  Company Number: US-ROCHE-1035078

PATIENT
  Sex: Male

DRUGS (31)
  1. FLUOROURACIL. [Concomitant]
     Active Substance: FLUOROURACIL
     Route: 042
  2. FLUOROURACIL. [Concomitant]
     Active Substance: FLUOROURACIL
     Route: 042
  3. FAMOTIDINE. [Concomitant]
     Active Substance: FAMOTIDINE
     Route: 042
  4. IRINOTECAN [Concomitant]
     Active Substance: IRINOTECAN
     Route: 042
  5. MAGNESIUM SULFATE. [Concomitant]
     Active Substance: MAGNESIUM SULFATE
     Route: 042
  6. CALCIUM LEUCOVORIN [Concomitant]
     Active Substance: LEUCOVORIN CALCIUM
     Route: 042
  7. BENADRYL [Concomitant]
     Active Substance: DIPHENHYDRAMINE HYDROCHLORIDE
  8. MANNITOL. [Concomitant]
     Active Substance: MANNITOL
     Route: 042
  9. ONDANSETRON [Concomitant]
     Active Substance: ONDANSETRON
     Route: 042
  10. LORAZEPAM. [Concomitant]
     Active Substance: LORAZEPAM
     Route: 065
  11. FLUOROURACIL. [Concomitant]
     Active Substance: FLUOROURACIL
     Route: 042
  12. OXALIPLATIN. [Concomitant]
     Active Substance: OXALIPLATIN
     Route: 065
  13. AVASTIN [Suspect]
     Active Substance: BEVACIZUMAB
     Route: 042
  14. AVASTIN [Suspect]
     Active Substance: BEVACIZUMAB
     Route: 042
  15. ONDANSETRON [Concomitant]
     Active Substance: ONDANSETRON
     Route: 042
  16. FLUOROURACIL. [Concomitant]
     Active Substance: FLUOROURACIL
     Route: 042
  17. AVASTIN [Suspect]
     Active Substance: BEVACIZUMAB
     Indication: GASTRIC CANCER
     Route: 042
  18. AVASTIN [Suspect]
     Active Substance: BEVACIZUMAB
     Route: 042
  19. CISPLATIN. [Concomitant]
     Active Substance: CISPLATIN
     Route: 042
  20. POTASSIUM CHLORIDE. [Concomitant]
     Active Substance: POTASSIUM CHLORIDE
     Route: 042
  21. DEXAMETHASONE. [Concomitant]
     Active Substance: DEXAMETHASONE
     Route: 065
  22. CALCIUM LEUCOVORIN [Concomitant]
     Active Substance: LEUCOVORIN CALCIUM
     Route: 042
  23. OXALIPLATIN. [Concomitant]
     Active Substance: OXALIPLATIN
     Route: 065
  24. CALCIUM GLUCONATE. [Concomitant]
     Active Substance: CALCIUM GLUCONATE
     Route: 042
  25. FLUOROURACIL. [Concomitant]
     Active Substance: FLUOROURACIL
     Route: 042
  26. OXALIPLATIN. [Concomitant]
     Active Substance: OXALIPLATIN
     Route: 065
  27. AVASTIN [Suspect]
     Active Substance: BEVACIZUMAB
     Route: 042
  28. LEUCOVORIN [Concomitant]
     Active Substance: LEUCOVORIN
  29. DEXAMETHASONE. [Concomitant]
     Active Substance: DEXAMETHASONE
     Route: 065
  30. CALCIUM LEUCOVORIN [Concomitant]
     Active Substance: LEUCOVORIN CALCIUM
     Route: 042
  31. DIPHENHYDRAMINE [Concomitant]
     Active Substance: DIPHENHYDRAMINE
     Route: 042

REACTIONS (8)
  - Dysphagia [Unknown]
  - Fatigue [Unknown]
  - Gastrooesophageal cancer [Fatal]
  - Off label use [Unknown]
  - Throat tightness [Unknown]
  - Decreased appetite [Unknown]
  - Protein urine present [Unknown]
  - Muscle spasms [Unknown]
